FAERS Safety Report 5753505-5 (Version None)
Quarter: 2008Q2

REPORT INFORMATION
  Report Type: 
  Country: None (occurrence: None)
  Receive Date: 20080530
  Receipt Date: 20080527
  Transmission Date: 20081010
  Serious: Yes (Other)
  Sender: FDA-Public Use
  Company Number: PHEH2008US04838

PATIENT

DRUGS (1)
  1. VIVELLE-DOT [Suspect]
     Route: 062

REACTIONS (1)
  - GASTROINTESTINAL HAEMORRHAGE [None]
